FAERS Safety Report 24183183 (Version 1)
Quarter: 2024Q3

REPORT INFORMATION
  Report Type: Other
  Country: IN (occurrence: IN)
  Receive Date: 20240807
  Receipt Date: 20240807
  Transmission Date: 20241017
  Serious: Yes (Hospitalization)
  Sender: ORBION PHARMACEUTICALS
  Company Number: IN-OrBion Pharmaceuticals Private Limited-2160096

PATIENT
  Age: 63 Year
  Sex: Male

DRUGS (2)
  1. DIVALPROEX SODIUM [Suspect]
     Active Substance: DIVALPROEX SODIUM
     Indication: Manic symptom
     Route: 065
  2. RISPERIDONE [Concomitant]
     Active Substance: RISPERIDONE
     Route: 065

REACTIONS (7)
  - Delirium [Recovering/Resolving]
  - Chronic kidney disease [Recovering/Resolving]
  - Cerebellar atrophy [Recovering/Resolving]
  - Hypertension [Recovering/Resolving]
  - Essential tremor [Recovering/Resolving]
  - Neuroleptic malignant syndrome [Recovering/Resolving]
  - Hyperammonaemia [Recovering/Resolving]
